FAERS Safety Report 10020596 (Version 1)
Quarter: 2014Q1

REPORT INFORMATION
  Report Type: Spontaneous
  Country: TN (occurrence: TN)
  Receive Date: 20140319
  Receipt Date: 20140319
  Transmission Date: 20141002
  Serious: Yes (Death)
  Sender: FDA-Public Use
  Company Number: TN-ROCHE-1365859

PATIENT
  Sex: Male

DRUGS (1)
  1. ACTILYSE [Suspect]
     Indication: ACUTE CORONARY SYNDROME
     Route: 042

REACTIONS (1)
  - Incorrect drug administration rate [Fatal]
